FAERS Safety Report 4415409-X (Version None)
Quarter: 2004Q2

REPORT INFORMATION
  Report Type: 
  Country: None (occurrence: None)
  Receive Date: 20040630
  Receipt Date: 20031103
  Transmission Date: 20050107
  Serious: Yes (Life-Threatening, Other)
  Sender: FDA-Public Use
  Company Number: 2003040351

PATIENT
  Age: 23 Year
  Sex: Female

DRUGS (1)
  1. ZOLOFT [Suspect]
     Indication: ILL-DEFINED DISORDER

REACTIONS (9)
  - ACCIDENTAL OVERDOSE [None]
  - AGITATION [None]
  - ATAXIA [None]
  - HYPERHIDROSIS [None]
  - HYPERREFLEXIA [None]
  - LOSS OF CONSCIOUSNESS [None]
  - MUSCULOSKELETAL STIFFNESS [None]
  - SEROTONIN SYNDROME [None]
  - SUPRAVENTRICULAR TACHYCARDIA [None]
